FAERS Safety Report 16382611 (Version 2)
Quarter: 2019Q2

REPORT INFORMATION
  Report Type: Spontaneous
  Country: JP (occurrence: JP)
  Receive Date: 20190603
  Receipt Date: 20190627
  Transmission Date: 20190711
  Serious: Yes (Death, Life-Threatening, Hospitalization, Other)
  Sender: FDA-Public Use
  Company Number: JP-ELI_LILLY_AND_COMPANY-JP201903010019

PATIENT
  Sex: Female
  Weight: 41 kg

DRUGS (7)
  1. BENIDIPINE HYDROCHLORIDE [Concomitant]
     Active Substance: BENIDIPINE HYDROCHLORIDE
  2. ABRAXANE [Concomitant]
     Active Substance: PACLITAXEL
     Indication: GASTRIC CANCER RECURRENT
     Dosage: 80 MG, CYCLICAL
     Route: 042
     Dates: start: 20190307, end: 20190307
  3. ALOXI [Concomitant]
     Active Substance: PALONOSETRON HYDROCHLORIDE
  4. LIXIANA [Concomitant]
     Active Substance: EDOXABAN TOSYLATE
  5. MAGNESIUM OXIDE. [Concomitant]
     Active Substance: MAGNESIUM OXIDE
  6. CYRAMZA [Suspect]
     Active Substance: RAMUCIRUMAB
     Indication: GASTRIC CANCER RECURRENT
     Dosage: 8 MG/KG, CYCLICAL
     Route: 042
     Dates: start: 20190307, end: 20190307
  7. DECADRON [Concomitant]
     Active Substance: DEXAMETHASONE

REACTIONS (4)
  - Malignant neoplasm progression [Unknown]
  - Acute myocardial infarction [Recovered/Resolved]
  - Large intestine perforation [Recovered/Resolved]
  - Cholangitis [Fatal]

NARRATIVE: CASE EVENT DATE: 201903
